FAERS Safety Report 13191135 (Version 1)
Quarter: 2017Q1

REPORT INFORMATION
  Report Type: Report from Study
  Country: None (occurrence: US)
  Receive Date: 20170207
  Receipt Date: 20170207
  Transmission Date: 20170428
  Serious: Yes (Other)
  Sender: FDA-Public Use
  Company Number: US-ABBVIE-17K-163-1859297-00

PATIENT
  Sex: Male

DRUGS (1)
  1. HUMIRA [Suspect]
     Active Substance: ADALIMUMAB
     Indication: RHEUMATOID ARTHRITIS
     Route: 058

REACTIONS (8)
  - Osteoporosis [Unknown]
  - Muscular weakness [Unknown]
  - Tremor [Unknown]
  - Arthralgia [Unknown]
  - Pain in extremity [Unknown]
  - Fatigue [Unknown]
  - Gait disturbance [Unknown]
  - Systemic lupus erythematosus [Unknown]
